FAERS Safety Report 8054399 (Version 3)
Quarter: 2014Q1

REPORT INFORMATION
  Report Type: Report from Study
  Country: CA (occurrence: CA)
  Receive Date: 20110726
  Receipt Date: 20140321
  Transmission Date: 20141002
  Serious: Yes (Hospitalization)
  Sender: FDA-Public Use
  Company Number: PHHY2010CA51199

PATIENT
  Age: 80 Year
  Sex: Male

DRUGS (12)
  1. ACLASTA [Suspect]
     Indication: OSTEOPOROSIS
     Dosage: 5 MG/100 ML
     Route: 042
     Dates: start: 20100730
  2. ACLASTA [Suspect]
     Dosage: UNK UKN, UNK
     Route: 042
     Dates: start: 20111014
  3. ACLASTA [Suspect]
     Dosage: UNK UKN, UNK
     Route: 042
     Dates: start: 20121014
  4. FUROSEMIDE [Concomitant]
     Dosage: 20 MG, DAILY
  5. A S A [Concomitant]
     Dosage: UNK UKN, UNK
  6. COVERSYL//PERINDOPRIL ARGININE [Concomitant]
     Dosage: 4 MG, UNK
  7. CAL-500 [Concomitant]
     Dosage: 1 MG, BID
  8. VITAMIN D [Concomitant]
     Dosage: UNK UKN, UNK
  9. VITAMIN B12 [Concomitant]
     Dosage: UNK UKN, UNK
  10. ROSUVASTATIN [Concomitant]
     Dosage: 10 MG, UNK
  11. SENSE-T [Concomitant]
     Dosage: UNK UKN, UNK
  12. DOCUSATE [Concomitant]
     Dosage: 1 DF, UNK

REACTIONS (3)
  - Infective exacerbation of chronic obstructive airways disease [Recovered/Resolved]
  - Sense of oppression [Recovered/Resolved]
  - Blood pressure decreased [Recovered/Resolved]
